FAERS Safety Report 4480022-5 (Version None)
Quarter: 2004Q4

REPORT INFORMATION
  Report Type: 
  Country: None (occurrence: None)
  Receive Date: 20041018
  Receipt Date: 20040930
  Transmission Date: 20050328
  Serious: Yes (Death)
  Sender: FDA-Public Use
  Company Number: DSA_25109_2004

PATIENT
  Age: 52 Year

DRUGS (3)
  1. LORAZEPAM [Suspect]
     Dosage: DF
  2. ISOPROPYL ALCOHOL COMPOUND LIQUID [Suspect]
     Dosage: DF PO
     Route: 048
  3. AMITRIPTYLINE HCL [Suspect]
     Dosage: DF PO
     Route: 048

REACTIONS (1)
  - MULTIPLE DRUG OVERDOSE [None]
